FAERS Safety Report 4653054-1 (Version None)
Quarter: 2005Q2

REPORT INFORMATION
  Report Type: 
  Country: None (occurrence: None)
  Receive Date: 20050502
  Receipt Date: 20050422
  Transmission Date: 20051028
  Serious: No
  Sender: FDA-Public Use
  Company Number: TPA2005A00385

PATIENT
  Age: 68 Year
  Sex: Female
  Weight: 81.6475 kg

DRUGS (8)
  1. ACTOS [Suspect]
     Indication: BLOOD GLUCOSE INCREASED
     Dosage: SEE IMAGE
     Route: 048
     Dates: start: 20020131, end: 20030520
  2. ACTOS [Suspect]
     Indication: BLOOD GLUCOSE INCREASED
     Dosage: SEE IMAGE
     Route: 048
     Dates: start: 20030520, end: 20030527
  3. ACTOS [Suspect]
     Indication: BLOOD GLUCOSE INCREASED
     Dosage: SEE IMAGE
     Route: 048
     Dates: start: 20030527, end: 20040608
  4. ACTOS [Suspect]
     Indication: BLOOD GLUCOSE INCREASED
     Dosage: SEE IMAGE
     Route: 048
     Dates: start: 20040619
  5. GLUCOTROL XL [Concomitant]
  6. SYNTHROID [Concomitant]
  7. IBUPROFEN [Concomitant]
  8. LIPITOR [Concomitant]

REACTIONS (2)
  - BLOOD GLUCOSE INCREASED [None]
  - GLYCOSYLATED HAEMOGLOBIN INCREASED [None]
